FAERS Safety Report 14268001 (Version 1)
Quarter: 2017Q4

REPORT INFORMATION
  Report Type: Spontaneous
  Country: US (occurrence: None)
  Receive Date: 20171211
  Receipt Date: 20171211
  Transmission Date: 20180321
  Serious: Yes (Life-Threatening, Hospitalization)
  Sender: FDA-Public Use
  Company Number: None

PATIENT
  Age: 19 Month
  Sex: Female
  Weight: 9.8 kg

DRUGS (1)
  1. BUPRENORPHINE/NALOXONE [Suspect]
     Active Substance: BUPRENORPHINE\NALOXONE
     Indication: PRODUCT USED FOR UNKNOWN INDICATION
     Dosage: BUPRENORPHINE 8 MG NALOXONE 2 MG  ORAL/BUCCAL
     Route: 048
     Dates: start: 20171003

REACTIONS (3)
  - Respiratory depression [None]
  - Vomiting [None]
  - Lethargy [None]

NARRATIVE: CASE EVENT DATE: 20171003
